FAERS Safety Report 8494156-1 (Version None)
Quarter: 2012Q2

REPORT INFORMATION
  Report Type: 
  Country: None (occurrence: None)
  Receive Date: 20120628
  Receipt Date: 20120619
  Transmission Date: 20120825
  Serious: Yes (Death)
  Sender: FDA-Public Use
  Company Number: DKLU1082403

PATIENT

DRUGS (5)
  1. ELSPAR [Suspect]
     Indication: LYMPHOMA
     Dosage: 6000 U/M2 ON DAYS 4, 6, 8, 10, 12
  2. DEXAMETHASONE [Suspect]
     Indication: LYMPHOMA
     Dosage: 20 MG MILLIGRAM(S), ON DAYS 1-4
  3. IFOSFAMIDE [Suspect]
     Indication: LYMPHOMA
     Dosage: 1000 MG/M2 MILLIGRAM(S)/SQ. METER, ON DAYS 1-3
  4. ETOPOSIDE [Suspect]
     Indication: LYMPHOMA
     Dosage: 100 MG/M2 MILLIGRAM(S)SQ. METER, ON DAYS 1-3
  5. GEMCITABINE [Suspect]
     Indication: LYMPHOMA
     Dosage: 1000 MG/M2 MILLIGRAM(S)/SQ.METER, ON DAYS 1 AND 8

REACTIONS (1)
  - INFECTION [None]
